FAERS Safety Report 5805063-4 (Version None)
Quarter: 2008Q3

REPORT INFORMATION
  Report Type: 
  Country: None (occurrence: None)
  Receive Date: 20080709
  Receipt Date: 20080624
  Transmission Date: 20090109
  Serious: Yes (Other)
  Sender: FDA-Public Use
  Company Number: SE-GENENTECH-263763

PATIENT
  Age: 44 Year
  Sex: Female

DRUGS (7)
  1. HERCEPTIN [Suspect]
     Indication: BREAST CANCER
     Dosage: UNK, Q3W
     Dates: start: 20080101
  2. TAXOTERE [Concomitant]
     Indication: DRUG USE FOR UNKNOWN INDICATION
  3. TAXOL [Concomitant]
     Indication: DRUG USE FOR UNKNOWN INDICATION
  4. CYCLOPHOSPHAMIDE [Concomitant]
     Indication: DRUG USE FOR UNKNOWN INDICATION
  5. EPIRUBICIN [Concomitant]
  6. FLUOROURACIL [Concomitant]
     Indication: DRUG USE FOR UNKNOWN INDICATION
  7. CHEMOTHERAPY (UNK INGREDIENTS) [Concomitant]
     Indication: DRUG USE FOR UNKNOWN INDICATION

REACTIONS (1)
  - BLISTER [None]
